FAERS Safety Report 9508887 (Version 2)
Quarter: 2013Q3

REPORT INFORMATION
  Report Type: Spontaneous
  Country: US (occurrence: US)
  Receive Date: 20130909
  Receipt Date: 20130909
  Transmission Date: 20140515
  Serious: No
  Sender: FDA-Public Use
  Company Number: US-BRISTOL-MYERS SQUIBB COMPANY-19043363

PATIENT
  Age: 50 Year
  Sex: Female

DRUGS (13)
  1. ABILIFY INJECTION [Suspect]
     Indication: SCHIZOAFFECTIVE DISORDER
     Route: 030
     Dates: start: 20130521
  2. HALDOL [Concomitant]
  3. ATIVAN [Concomitant]
  4. AMBIEN [Concomitant]
  5. ZOLOFT [Concomitant]
  6. WELLBUTRIN XL [Concomitant]
  7. TRILEPTAL [Concomitant]
  8. COGENTIN [Concomitant]
  9. DOCUSATE [Concomitant]
  10. MULTIVITAMINS [Concomitant]
  11. TYLENOL [Concomitant]
  12. BISACODYL [Concomitant]
  13. MILK OF MAGNESIA [Concomitant]

REACTIONS (1)
  - Vomiting [Unknown]
